FAERS Safety Report 13160076 (Version 1)
Quarter: 2017Q1

REPORT INFORMATION
  Report Type: Report from Study
  Country: US (occurrence: US)
  Receive Date: 20170127
  Receipt Date: 20170127
  Transmission Date: 20170428
  Serious: Yes (Hospitalization)
  Sender: FDA-Public Use
  Company Number: PHHO2017US001830

PATIENT
  Age: 67 Year
  Sex: Female
  Weight: 68.5 kg

DRUGS (11)
  1. OXYCODONE [Suspect]
     Active Substance: OXYCODONE
     Indication: PRODUCT USED FOR UNKNOWN INDICATION
     Dosage: 5 MG, UNK
     Route: 065
  2. BLINDED PAZOPANIB [Suspect]
     Active Substance: PAZOPANIB
     Indication: ANAPLASTIC THYROID CANCER
     Dosage: 400 MG, QD
     Route: 048
     Dates: start: 20151211
  3. COMPARATOR PACLITAXEL [Suspect]
     Active Substance: PACLITAXEL
     Indication: ANAPLASTIC THYROID CANCER
     Dosage: 80 MG/M2, QW
     Route: 042
     Dates: start: 20151211
  4. BLINDED PAZOPANIB [Suspect]
     Active Substance: PAZOPANIB
     Dosage: 300 MG, QD
     Route: 048
  5. COMPARATOR PACLITAXEL [Suspect]
     Active Substance: PACLITAXEL
     Dosage: 50 MG/M2, QW
     Route: 042
  6. BLINDED PACLITAXEL [Suspect]
     Active Substance: PACLITAXEL
     Indication: ANAPLASTIC THYROID CANCER
     Dosage: 400 MG, QD
     Route: 048
     Dates: start: 20151211
  7. BLINDED PACLITAXEL [Suspect]
     Active Substance: PACLITAXEL
     Dosage: 300 MG, QD
     Route: 048
  8. FENTANYL. [Suspect]
     Active Substance: FENTANYL
     Indication: PRODUCT USED FOR UNKNOWN INDICATION
     Dosage: 25 UG/HR, UNK
     Route: 065
  9. BLINDED NO TREATMENT RECEIVED [Suspect]
     Active Substance: INVESTIGATIONAL PRODUCT
     Indication: ANAPLASTIC THYROID CANCER
     Dosage: 400 MG, QD
     Route: 048
     Dates: start: 20151211
  10. GABAPENTIN. [Suspect]
     Active Substance: GABAPENTIN
     Indication: PRODUCT USED FOR UNKNOWN INDICATION
     Dosage: 100 MG
     Route: 048
  11. BLINDED NO TREATMENT RECEIVED [Suspect]
     Active Substance: INVESTIGATIONAL PRODUCT
     Dosage: 300 MG, QD
     Route: 048

REACTIONS (3)
  - Confusional state [Unknown]
  - Pulmonary embolism [Unknown]
  - Rectal haemorrhage [Unknown]

NARRATIVE: CASE EVENT DATE: 20160212
